FAERS Safety Report 8912902 (Version 5)
Quarter: 2013Q1

REPORT INFORMATION
  Report Type: Spontaneous
  Country: US (occurrence: US)
  Receive Date: 20121116
  Receipt Date: 20130104
  Transmission Date: 20140127
  Serious: Yes (Death, Hospitalization)
  Sender: FDA-Public Use
  Company Number: US-GLAXOSMITHKLINE-A1001116A

PATIENT
  Age: 49 Year
  Sex: Female

DRUGS (12)
  1. FLOLAN [Suspect]
     Indication: PRODUCT USED FOR UNKNOWN INDICATION
     Dosage: 35.49NGKM CONTINUOUS
     Route: 042
     Dates: start: 20100423
  2. DIURETICS [Concomitant]
  3. FUROSEMIDE [Concomitant]
  4. ASPIRIN [Concomitant]
  5. PREDNISONE [Concomitant]
  6. ULORIC [Concomitant]
  7. TYLENOL [Concomitant]
  8. CALCIUM [Concomitant]
  9. IMODIUM [Concomitant]
  10. ADCIRCA [Concomitant]
  11. MAGN. OXIDE [Concomitant]
  12. POTASSIUM [Concomitant]

REACTIONS (10)
  - Death [Fatal]
  - Sepsis [Unknown]
  - Device related infection [Unknown]
  - Dizziness [Unknown]
  - Local swelling [Unknown]
  - Haematoma [Unknown]
  - Pain [Unknown]
  - Dyspnoea [Unknown]
  - Abdominal pain [Unknown]
  - Device infusion issue [Unknown]
